FAERS Safety Report 5588271-X (Version None)
Quarter: 2008Q1

REPORT INFORMATION
  Report Type: 
  Country: None (occurrence: None)
  Receive Date: 20080111
  Receipt Date: 20080104
  Transmission Date: 20080703
  Serious: Yes (Disabling, Other)
  Sender: FDA-Public Use
  Company Number: CA-ASTRAZENECA-2006UW28157

PATIENT
  Age: 54 Year
  Sex: Female

DRUGS (5)
  1. ARIMIDEX [Suspect]
     Indication: BREAST CANCER
     Route: 048
     Dates: start: 20060601
  2. TAMOXIFEN [Concomitant]
     Indication: BREAST CANCER
     Route: 048
     Dates: start: 20050701, end: 20050801
  3. FOSAMAX [Concomitant]
  4. ADVIL LIQUI-GELS [Concomitant]
     Dates: start: 20060701
  5. ATIVAN [Concomitant]
     Dates: start: 20060701

REACTIONS (10)
  - ARTHRALGIA [None]
  - DEAFNESS [None]
  - FATIGUE [None]
  - INSOMNIA [None]
  - JOINT STIFFNESS [None]
  - OSTEOPOROSIS [None]
  - PAIN [None]
  - RIB FRACTURE [None]
  - TENDON DISORDER [None]
  - TENDON PAIN [None]
